FAERS Safety Report 9312383 (Version 1)
Quarter: 2013Q2

REPORT INFORMATION
  Report Type: Spontaneous
  Country: US (occurrence: None)
  Receive Date: 20130509
  Receipt Date: 20130509
  Transmission Date: 20140414
  Serious: No
  Sender: FDA-Public Use
  Company Number: US-145397

PATIENT
  Age: 55 Year
  Sex: Male
  Weight: 97.3 kg

DRUGS (1)
  1. WINRHO SDF LIQUID [Suspect]
     Indication: AUTOIMMUNE THROMBOCYTOPENIA
     Dosage: 50 UG/KG TOTAL INTRAVENOUS (NOT OTHERWISE SPECIFIED)
     Route: 042
     Dates: start: 20130405, end: 20130405

REACTIONS (4)
  - Leukocytosis [None]
  - Haemoglobin decreased [None]
  - Haemolysis [None]
  - Infection [None]
